FAERS Safety Report 7829412-0 (Version None)
Quarter: 2011Q4

REPORT INFORMATION
  Report Type: 
  Country: None (occurrence: None)
  Receive Date: 20111020
  Receipt Date: 20111011
  Transmission Date: 20120403
  Serious: Yes (Other)
  Sender: FDA-Public Use
  Company Number: MX-SANOFI-AVENTIS-2011SA067969

PATIENT
  Age: 56 Year
  Sex: Female
  Weight: 60 kg

DRUGS (5)
  1. LASIX [Concomitant]
     Route: 048
  2. LANTUS [Suspect]
     Indication: TYPE 2 DIABETES MELLITUS
     Dosage: 64 IU IN THE MORNING AND 30 IU AT NIGHT
     Route: 058
     Dates: start: 20030101
  3. VERAPAMIL [Concomitant]
     Route: 048
  4. AMITRIPTYLINE HCL [Concomitant]
     Route: 048
  5. ALL OTHER THERAPEUTIC PRODUCTS [Concomitant]
     Indication: DIABETIC NEUROPATHY

REACTIONS (6)
  - DRUG ADMINISTRATION ERROR [None]
  - TREMOR [None]
  - CARDIAC DISORDER [None]
  - HYPERGLYCAEMIA [None]
  - HYPOGLYCAEMIA [None]
  - HYPERHIDROSIS [None]
